FAERS Safety Report 14256114 (Version 3)
Quarter: 2020Q3

REPORT INFORMATION
  Report Type: Spontaneous
  Country: US (occurrence: US)
  Receive Date: 20171206
  Receipt Date: 20200707
  Transmission Date: 20201102
  Serious: Yes (Other)
  Sender: FDA-Public Use
  Company Number: US-BRISTOL-MYERS SQUIBB COMPANY-BMS-2017-107575

PATIENT
  Sex: Male
  Weight: 51.7 kg

DRUGS (1)
  1. ELIQUIS [Suspect]
     Active Substance: APIXABAN
     Indication: AORTIC VALVE REPLACEMENT
     Dosage: 2.5 MG, BID
     Route: 048
     Dates: start: 201708, end: 201711

REACTIONS (4)
  - Asthenia [Unknown]
  - Epistaxis [Recovered/Resolved]
  - Intentional product use issue [Unknown]
  - Eye haemorrhage [Unknown]
